FAERS Safety Report 4999849-6 (Version None)
Quarter: 2006Q2

REPORT INFORMATION
  Report Type: 
  Country: None (occurrence: None)
  Receive Date: 20060509
  Receipt Date: 20060424
  Transmission Date: 20061013
  Serious: Yes (Hospitalization, Other)
  Sender: FDA-Public Use
  Company Number: 2006PV011688

PATIENT
  Age: 87 Year
  Sex: Male
  Weight: 83.9154 kg

DRUGS (16)
  1. BYETTA [Suspect]
     Indication: DIABETES MELLITUS INSULIN-DEPENDENT
     Dosage: 5 MCG; BID; SC
     Route: 058
     Dates: start: 20051209, end: 20060208
  2. BISACODYL [Concomitant]
  3. GLUCOPHAGE XR [Concomitant]
  4. MI-ACID [Concomitant]
  5. HUMALOG [Concomitant]
  6. NOVOLIN [Concomitant]
  7. AMARYL [Concomitant]
  8. AVANDIA [Concomitant]
  9. LOVASTATIN [Concomitant]
  10. PERIOGARD [Concomitant]
  11. ACETAZOLAMIDE [Concomitant]
  12. CAPTOPRIL [Concomitant]
  13. CLONIDINE [Concomitant]
  14. ETODOLAC [Concomitant]
  15. FERROUS SULFATE TAB [Concomitant]
  16. RISPERDAL [Concomitant]

REACTIONS (2)
  - BREAST CANCER METASTATIC [None]
  - GYNAECOMASTIA [None]
